FAERS Safety Report 11451492 (Version 3)
Quarter: 2015Q4

REPORT INFORMATION
  Report Type: Spontaneous
  Country: US (occurrence: US)
  Receive Date: 20150903
  Receipt Date: 20151103
  Transmission Date: 20160304
  Serious: No
  Sender: FDA-Public Use
  Company Number: PHEH2014US026136

PATIENT
  Age: 51 Year
  Sex: Female
  Weight: 129 kg

DRUGS (6)
  1. VIVELLE-DOT [Suspect]
     Active Substance: ESTRADIOL
     Dosage: 0.05 MG, UNK
     Route: 062
     Dates: end: 20150310
  2. WOMEN^S MULTI [Concomitant]
     Indication: PRODUCT USED FOR UNKNOWN INDICATION
     Route: 065
  3. PROGESTERONE. [Concomitant]
     Active Substance: PROGESTERONE
     Indication: PRODUCT USED FOR UNKNOWN INDICATION
     Route: 065
  4. VITAMIN C [Concomitant]
     Active Substance: ASCORBIC ACID
     Indication: PRODUCT USED FOR UNKNOWN INDICATION
     Route: 065
  5. VIVELLE-DOT [Suspect]
     Active Substance: ESTRADIOL
     Indication: MENOPAUSAL SYMPTOMS
     Dosage: 0.05 MG, UNK
     Route: 062
     Dates: start: 201408
  6. FISH OIL [Concomitant]
     Active Substance: FISH OIL
     Indication: PRODUCT USED FOR UNKNOWN INDICATION
     Route: 065

REACTIONS (2)
  - Application site swelling [Unknown]
  - Application site rash [Recovered/Resolved]

NARRATIVE: CASE EVENT DATE: 201408
